FAERS Safety Report 21135385 (Version 1)
Quarter: 2022Q3

REPORT INFORMATION
  Report Type: Spontaneous
  Country: FR (occurrence: FR)
  Receive Date: 20220727
  Receipt Date: 20220727
  Transmission Date: 20221027
  Serious: Yes (Other)
  Sender: FDA-Public Use
  Company Number: None

PATIENT
  Age: 67 Year
  Sex: Male
  Weight: 73 kg

DRUGS (3)
  1. FLUDARABINE PHOSPHATE [Suspect]
     Active Substance: FLUDARABINE PHOSPHATE
     Indication: Myelofibrosis
     Dosage: 62.5 MG 1/J PENDANT 5 JOURS
     Route: 042
     Dates: start: 20220209, end: 20220213
  2. THIOTEPA [Suspect]
     Active Substance: THIOTEPA
     Indication: Myelofibrosis
     Dosage: 10 MG DOSE UNIQUE
     Route: 042
     Dates: start: 20220208, end: 20220208
  3. CYCLOPHOSPHAMIDE [Suspect]
     Active Substance: CYCLOPHOSPHAMIDE
     Indication: Stem cell transplant
     Dosage: 4260 MG 1/J PENDANT 2 JOURS
     Route: 042
     Dates: start: 20220217, end: 20220218

REACTIONS (2)
  - Dermatitis bullous [Recovering/Resolving]
  - Toxic erythema of chemotherapy [Recovering/Resolving]

NARRATIVE: CASE EVENT DATE: 20220223
